FAERS Safety Report 5131822-X (Version None)
Quarter: 2006Q4

REPORT INFORMATION
  Report Type: 
  Country: None (occurrence: None)
  Receive Date: 20061016
  Receipt Date: 20061005
  Transmission Date: 20070319
  Serious: Yes (Hospitalization, Other)
  Sender: FDA-Public Use
  Company Number: 2005137125

PATIENT
  Age: 10 Year
  Sex: Female
  Weight: 38 kg

DRUGS (3)
  1. GENOTROPIN [Suspect]
     Indication: GROWTH HORMONE DEFICIENCY
     Dosage: 1.3 MG (DAILY), SUBCUTANEOUS
     Route: 058
     Dates: start: 19990626, end: 20050901
  2. GENOTROPIN [Suspect]
     Indication: GROWTH HORMONE DEFICIENCY
     Dosage: 1.3 MG (DAILY), SUBCUTANEOUS
     Route: 058
     Dates: start: 20060701
  3. LEVOTHYROXINE SODIUM [Concomitant]

REACTIONS (1)
  - RENAL CELL CARCINOMA STAGE UNSPECIFIED [None]
